FAERS Safety Report 5672974-2 (Version None)
Quarter: 2008Q1

REPORT INFORMATION
  Report Type: 
  Country: None (occurrence: None)
  Receive Date: 20080319
  Receipt Date: 20071214
  Transmission Date: 20080703
  Serious: No
  Sender: FDA-Public Use
  Company Number: US-ASTRAZENECA-2007UW26099

PATIENT
  Age: 86 Year
  Sex: Male
  Weight: 90.7 kg

DRUGS (4)
  1. SYMBICORT [Suspect]
     Indication: WHEEZING
     Dosage: 160/4.5 UG
     Route: 055
     Dates: start: 20071001
  2. BENACAR [Concomitant]
  3. TIMOLOL MALEATE [Concomitant]
  4. AZOPT [Concomitant]

REACTIONS (2)
  - INTRAOCULAR PRESSURE INCREASED [None]
  - TENSION [None]
